FAERS Safety Report 7746939-0 (Version None)
Quarter: 2011Q3

REPORT INFORMATION
  Report Type: 
  Country: None (occurrence: None)
  Receive Date: 20110913
  Receipt Date: 20110901
  Transmission Date: 20111222
  Serious: Yes (Other)
  Sender: FDA-Public Use
  Company Number: PHHY2010FR82513

PATIENT
  Sex: Male

DRUGS (10)
  1. TASIGNA [Suspect]
     Indication: GASTROINTESTINAL STROMAL TUMOUR
     Dosage: 400 MG, BID
     Dates: start: 20100811
  2. FERROUS SULFATE TAB [Concomitant]
     Dosage: 1 DF, UNK
     Dates: start: 20100501, end: 20101010
  3. NEXIUM [Concomitant]
  4. NEO-MERCAZOLE TAB [Concomitant]
     Dosage: UNK
     Dates: start: 20070101
  5. GLUCOPHAGE [Concomitant]
     Dosage: UNK
     Dates: start: 20060101
  6. ACETAMINOPHEN [Concomitant]
  7. LASIX [Concomitant]
  8. LYRICA [Concomitant]
  9. METFORMIN HCL [Concomitant]
  10. PREVISCAN [Concomitant]

REACTIONS (4)
  - PAIN [None]
  - SKIN ULCER [None]
  - ANGIODERMATITIS [None]
  - HYPERAESTHESIA [None]
